FAERS Safety Report 23048617 (Version 1)
Quarter: 2023Q4

REPORT INFORMATION
  Report Type: Spontaneous
  Country: US (occurrence: US)
  Receive Date: 20231010
  Receipt Date: 20231010
  Transmission Date: 20240110
  Serious: Yes (Other)
  Sender: FDA-Public Use
  Company Number: US-60 DEGREES PHARMACEUTICALS, LLC-20231000001

PATIENT
  Age: 60 Year
  Sex: Female
  Weight: 55.782 kg

DRUGS (1)
  1. ARAKODA [Suspect]
     Active Substance: TAFENOQUINE SUCCINATE
     Indication: Babesiosis
     Dosage: UNK, SINGLE
     Dates: start: 20230918, end: 20230918

REACTIONS (5)
  - Eye haemorrhage [Not Recovered/Not Resolved]
  - Visual impairment [Not Recovered/Not Resolved]
  - Vision blurred [Not Recovered/Not Resolved]
  - Visual impairment [Not Recovered/Not Resolved]
  - Vitreous floaters [Not Recovered/Not Resolved]

NARRATIVE: CASE EVENT DATE: 20230921
